FAERS Safety Report 13883492 (Version 1)
Quarter: 2017Q3

REPORT INFORMATION
  Report Type: Spontaneous
  Country: GB (occurrence: GB)
  Receive Date: 20170818
  Receipt Date: 20170818
  Transmission Date: 20171127
  Serious: Yes (Hospitalization)
  Sender: FDA-Public Use
  Company Number: GB-TEVA-795923ACC

PATIENT
  Age: 87 Year
  Sex: Male

DRUGS (8)
  1. NICORANDIL [Concomitant]
     Active Substance: NICORANDIL
  2. OLMESARTAN [Concomitant]
     Active Substance: OLMESARTAN
  3. METOPROLOL. [Suspect]
     Active Substance: METOPROLOL
     Dosage: 200 MILLIGRAM DAILY;
     Route: 048
  4. METFORMIN HYDROCHLORIDE. [Concomitant]
     Active Substance: METFORMIN HYDROCHLORIDE
  5. TEMAZEPAM. [Concomitant]
     Active Substance: TEMAZEPAM
  6. EZETIMIBE. [Concomitant]
     Active Substance: EZETIMIBE
  7. FELODIPINE. [Concomitant]
     Active Substance: FELODIPINE
  8. PRAVASTATIN SODIUM. [Concomitant]
     Active Substance: PRAVASTATIN SODIUM

REACTIONS (2)
  - Atrioventricular block [Recovering/Resolving]
  - Bradycardia [Recovering/Resolving]
